FAERS Safety Report 9027270 (Version 3)
Quarter: 2013Q2

REPORT INFORMATION
  Report Type: Spontaneous
  Country: US (occurrence: US)
  Receive Date: 20130123
  Receipt Date: 20130409
  Transmission Date: 20140414
  Serious: Yes (Hospitalization)
  Sender: FDA-Public Use
  Company Number: US-GILEAD-2013-0068267

PATIENT
  Age: 18 Year
  Sex: Female

DRUGS (6)
  1. LETAIRIS [Suspect]
     Indication: PULMONARY HYPERTENSION
     Dosage: 10 MG, QD
     Route: 048
     Dates: start: 20111201
  2. LETAIRIS [Suspect]
     Indication: HEART DISEASE CONGENITAL
  3. LETAIRIS [Suspect]
     Indication: ATRIAL SEPTAL DEFECT
  4. LETAIRIS [Suspect]
     Indication: VENTRICULAR SEPTAL DEFECT
  5. REMODULIN [Concomitant]
  6. REVATIO [Concomitant]

REACTIONS (7)
  - Pyrexia [Recovered/Resolved]
  - Abdominal distension [Unknown]
  - Local swelling [Unknown]
  - Platelet count decreased [Unknown]
  - Colitis [Unknown]
  - Swelling [Unknown]
  - Fluid retention [Unknown]
